FAERS Safety Report 12304667 (Version 1)
Quarter: 2016Q2

REPORT INFORMATION
  Report Type: Spontaneous
  Country: US (occurrence: None)
  Receive Date: 20160425
  Receipt Date: 20160425
  Transmission Date: 20160815
  Serious: Yes (Hospitalization, Other)
  Sender: FDA-Public Use
  Company Number: None

PATIENT
  Age: 79 Year
  Sex: Male

DRUGS (7)
  1. ONCOLITE [Concomitant]
  2. IMBRUVICA [Suspect]
     Active Substance: IBRUTINIB
     Indication: NON-HODGKIN^S LYMPHOMA
     Route: 048
     Dates: start: 20151229, end: 20160216
  3. IMBRUVICA [Suspect]
     Active Substance: IBRUTINIB
     Indication: WALDENSTROM^S MACROGLOBULINAEMIA
     Route: 048
     Dates: start: 20151229, end: 20160216
  4. ELIQUIS [Concomitant]
     Active Substance: APIXABAN
  5. TYLENOL [Concomitant]
     Active Substance: ACETAMINOPHEN
  6. ATENOL [Concomitant]
     Active Substance: ATENOLOL
  7. CANE [Concomitant]

REACTIONS (6)
  - General physical health deterioration [None]
  - Heart rate decreased [None]
  - Decreased appetite [None]
  - Drug ineffective [None]
  - Cardiac arrest [None]
  - Atrial fibrillation [None]

NARRATIVE: CASE EVENT DATE: 20160216
